FAERS Safety Report 9925036 (Version 1)
Quarter: 2014Q1

REPORT INFORMATION
  Report Type: Spontaneous
  Country: US (occurrence: None)
  Receive Date: 20140225
  Receipt Date: 20140225
  Transmission Date: 20141002
  Serious: Yes (Other)
  Sender: FDA-Public Use
  Company Number: None

PATIENT
  Age: 27 Year
  Sex: Female
  Weight: 56.7 kg

DRUGS (2)
  1. CONTROL CREAM MARIO BADESCU CFSAN [Suspect]
     Indication: DRY SKIN PROPHYLAXIS
     Dates: start: 20101105, end: 20140215
  2. CORTICOSTEROID [Suspect]

REACTIONS (5)
  - Erythema [None]
  - Pruritus [None]
  - Skin exfoliation [None]
  - Drug withdrawal syndrome [None]
  - Product quality issue [None]
